FAERS Safety Report 19102136 (Version 5)
Quarter: 2024Q4

REPORT INFORMATION
  Report Type: Spontaneous
  Country: FR (occurrence: FR)
  Receive Date: 20210407
  Receipt Date: 20241219
  Transmission Date: 20250115
  Serious: Yes (Other)
  Sender: SANOFI AVENTIS
  Company Number: FR-SA-2021SA112205

PATIENT
  Age: 3 Year
  Sex: Female

DRUGS (30)
  1. PREDNISOLONE [Suspect]
     Active Substance: PREDNISOLONE
     Indication: Still^s disease
     Dosage: 1 MG/KG, QD WAS GRADUALLY TAPERED AND ULTIMATELY STOPPED
  2. PREDNISOLONE [Suspect]
     Active Substance: PREDNISOLONE
     Dosage: 2 MG/KG PER DAY
  3. ALEMTUZUMAB [Suspect]
     Active Substance: ALEMTUZUMAB
     Indication: Bone marrow conditioning regimen
     Dosage: 0.5 MG/KG
  4. ALEMTUZUMAB [Suspect]
     Active Substance: ALEMTUZUMAB
     Indication: Still^s disease
  5. ALEMTUZUMAB [Suspect]
     Active Substance: ALEMTUZUMAB
     Indication: Still^s disease
  6. FLUDARABINE PHOSPHATE [Suspect]
     Active Substance: FLUDARABINE PHOSPHATE
     Indication: Bone marrow conditioning regimen
     Dosage: 160 MG/M2
  7. FLUDARABINE PHOSPHATE [Suspect]
     Active Substance: FLUDARABINE PHOSPHATE
     Indication: Still^s disease
  8. CYCLOPHOSPHAMIDE [Suspect]
     Active Substance: CYCLOPHOSPHAMIDE
     Indication: Prophylaxis against graft versus host disease
     Dosage: 50 MG/KG (ON DAY +3 AND +4)
  9. PENICILLIN V [Suspect]
     Active Substance: PENICILLIN V
     Indication: Prophylaxis
     Dosage: UNKNOWN
  10. METHOTREXATE [Suspect]
     Active Substance: METHOTREXATE
     Indication: Still^s disease
     Dosage: 5 MG, QW
  11. METHYLPREDNISOLONE [Suspect]
     Active Substance: METHYLPREDNISOLONE
     Indication: Still^s disease
     Dosage: UNKNOWN
  12. RITUXIMAB [Suspect]
     Active Substance: RITUXIMAB
     Indication: Bone marrow conditioning regimen
     Dosage: 375 MG/M2
  13. RITUXIMAB [Suspect]
     Active Substance: RITUXIMAB
     Indication: Still^s disease
  14. BUSULFAN [Suspect]
     Active Substance: BUSULFAN
     Indication: Bone marrow conditioning regimen
     Dosage: AUC OF 25638 MICROM/MIN
  15. BUSULFAN [Suspect]
     Active Substance: BUSULFAN
     Indication: Still^s disease
  16. CYCLOSPORINE [Suspect]
     Active Substance: CYCLOSPORINE
     Indication: Prophylaxis against graft versus host disease
     Dosage: STARTING ON DAY 5
  17. ANAKINRA [Suspect]
     Active Substance: ANAKINRA
     Indication: Still^s disease
     Dosage: UNK
  18. ADALIMUMAB [Suspect]
     Active Substance: ADALIMUMAB
     Indication: Still^s disease
     Dosage: UNKNOWN
  19. MYCOPHENOLATE MOFETIL [Suspect]
     Active Substance: MYCOPHENOLATE MOFETIL
     Indication: Prophylaxis against graft versus host disease
     Dosage: STARTING ON DAY 5
  20. THALIDOMIDE [Suspect]
     Active Substance: THALIDOMIDE
     Indication: Still^s disease
     Dosage: 50 MG, QD
  21. INDOMETHACIN [Suspect]
     Active Substance: INDOMETHACIN
     Indication: Still^s disease
     Dosage: 25 MG, QD
  22. INFLIXIMAB [Suspect]
     Active Substance: INFLIXIMAB
     Indication: Still^s disease
     Dosage: 75 MG, Q4W
  23. INFLIXIMAB [Suspect]
     Active Substance: INFLIXIMAB
     Indication: Graft versus host disease in gastrointestinal tract
  24. LEVOTHYROXINE [Concomitant]
     Active Substance: LEVOTHYROXINE
     Indication: Autoimmune thyroiditis
     Dosage: UNK
  25. HYDROCORTISONE [Concomitant]
     Active Substance: HYDROCORTISONE
     Indication: Secondary adrenocortical insufficiency
     Dosage: 12.5 MG/M2, QD
  26. HUMAN IMMUNOGLOBULIN G [Concomitant]
     Active Substance: HUMAN IMMUNOGLOBULIN G
     Indication: Immune thrombocytopenia
     Dosage: UNK UNK, Q3W
     Route: 042
  27. HUMAN IMMUNOGLOBULIN G [Concomitant]
     Active Substance: HUMAN IMMUNOGLOBULIN G
     Dosage: 1 G/KG
     Route: 042
  28. HUMAN IMMUNOGLOBULIN G [Concomitant]
     Active Substance: HUMAN IMMUNOGLOBULIN G
     Dosage: 4 G, QW
     Route: 058
  29. CANAKINUMAB [Concomitant]
     Active Substance: CANAKINUMAB
     Indication: Still^s disease
     Dosage: UNKNOWN
  30. TOCILIZUMAB [Concomitant]
     Active Substance: TOCILIZUMAB
     Indication: Still^s disease
     Dosage: UNKNOWN

REACTIONS (29)
  - Obliterative bronchiolitis [Recovered/Resolved]
  - Joint effusion [Recovered/Resolved]
  - Lung disorder [Recovered/Resolved]
  - Graft versus host disease in gastrointestinal tract [Recovered/Resolved]
  - Autoimmune thyroiditis [Unknown]
  - Immune thrombocytopenia [Recovered/Resolved]
  - Focal nodular hyperplasia [Unknown]
  - Herpes zoster [Unknown]
  - Impaired quality of life [Unknown]
  - Ill-defined disorder [Unknown]
  - Osteopenia [Unknown]
  - Bone marrow failure [Recovered/Resolved]
  - Hypothyroidism [Unknown]
  - Condition aggravated [Unknown]
  - Hepatic cytolysis [Unknown]
  - Vitiligo [Unknown]
  - Growth retardation [Recovering/Resolving]
  - Actinomycotic sepsis [Recovering/Resolving]
  - Arthralgia [Unknown]
  - Clostridium difficile colitis [Recovered/Resolved]
  - Cellulitis staphylococcal [Recovering/Resolving]
  - Herpes zoster infection neurological [Recovering/Resolving]
  - Superinfection bacterial [Recovering/Resolving]
  - Inflammation [Unknown]
  - Acute graft versus host disease in skin [Recovering/Resolving]
  - Infection [Unknown]
  - Infection reactivation [Recovering/Resolving]
  - Varicella zoster virus infection [Recovering/Resolving]
  - Off label use [Unknown]
